FAERS Safety Report 7657634-0 (Version None)
Quarter: 2011Q3

REPORT INFORMATION
  Report Type: 
  Country: None (occurrence: None)
  Receive Date: 20110804
  Receipt Date: 20110712
  Transmission Date: 20111222
  Serious: Yes (Life-Threatening, Hospitalization, Disabling)
  Sender: FDA-Public Use
  Company Number: US-GILEAD-2011-0040108

PATIENT
  Sex: Female

DRUGS (1)
  1. LETAIRIS [Suspect]
     Indication: PULMONARY HYPERTENSION
     Route: 048
     Dates: start: 20110204

REACTIONS (13)
  - OXYGEN SATURATION ABNORMAL [None]
  - TRACHEOSTOMY [None]
  - RENAL FAILURE [None]
  - THORACOTOMY [None]
  - HYPERTENSION [None]
  - LETHARGY [None]
  - RESPIRATORY FAILURE [None]
  - WEANING FAILURE [None]
  - PULMONARY HYPERTENSION [None]
  - DYSPNOEA [None]
  - HYPERCAPNIA [None]
  - SEPSIS [None]
  - EMPYEMA [None]
